FAERS Safety Report 26139117 (Version 1)
Quarter: 2025Q4

REPORT INFORMATION
  Report Type: Spontaneous
  Country: US (occurrence: US)
  Receive Date: 20251210
  Receipt Date: 20251210
  Transmission Date: 20260117
  Serious: No
  Sender: EDENBRIDGE PHARMACEUTICALS
  Company Number: US-EDENBRIDGE PHARMACEUTICALS, LLC-US-2025EDE000002

PATIENT
  Sex: Male

DRUGS (4)
  1. IVERMECTIN [Suspect]
     Active Substance: IVERMECTIN
     Indication: Scabies
     Dosage: 8 DOSAGE FORM, SINGLE
     Route: 065
  2. IVERMECTIN [Suspect]
     Active Substance: IVERMECTIN
     Dosage: 8 DOSAGE FORM, 3 DOSES (TOTAL OF 24 PILLS)
     Route: 065
  3. IVERMECTIN [Suspect]
     Active Substance: IVERMECTIN
     Dosage: 5 DOSAGE FORM, AFTER 10 DAYS 5 DOSAGE FORM MORE
     Route: 065
  4. PERMETHRIN [Concomitant]
     Active Substance: PERMETHRIN
     Indication: Strongyloidiasis
     Route: 065

REACTIONS (8)
  - Skin discolouration [Not Recovered/Not Resolved]
  - Illness [Unknown]
  - Emotional distress [Unknown]
  - Fear [Unknown]
  - Nausea [Unknown]
  - Unevaluable event [Unknown]
  - Drug ineffective for unapproved indication [Unknown]
  - Product use in unapproved indication [Unknown]
